FAERS Safety Report 25527904 (Version 6)
Quarter: 2025Q3

REPORT INFORMATION
  Report Type: Spontaneous
  Country: EU (occurrence: EU)
  Receive Date: 20250708
  Receipt Date: 20250929
  Transmission Date: 20251020
  Serious: Yes (Hospitalization, Other)
  Sender: AUROBINDO
  Company Number: EU-TAKEDA-2025TUS022042

PATIENT
  Sex: Male

DRUGS (17)
  1. OXYCODONE [Suspect]
     Active Substance: OXYCODONE
     Indication: Ankylosing spondylitis
     Dosage: 40 MILLIGRAM, ONCE A DAY
     Route: 065
  2. TEDUGLUTIDE [Suspect]
     Active Substance: TEDUGLUTIDE
     Indication: Short-bowel syndrome
     Dosage: 0.2 MILLILITER, ONCE A DAY
     Route: 058
     Dates: start: 20250220
  3. TEDUGLUTIDE [Suspect]
     Active Substance: TEDUGLUTIDE
     Dosage: 0.2 MILLILITER, ONCE A DAY
     Route: 058
  4. TEDUGLUTIDE [Suspect]
     Active Substance: TEDUGLUTIDE
     Route: 058
  5. TEDUGLUTIDE [Suspect]
     Active Substance: TEDUGLUTIDE
     Dosage: 0.2 MILLILITER, ONCE A DAY
     Route: 058
  6. TEDUGLUTIDE [Suspect]
     Active Substance: TEDUGLUTIDE
     Dosage: 0.2 MILLILITER, ONCE A DAY
     Route: 058
  7. TEDUGLUTIDE [Suspect]
     Active Substance: TEDUGLUTIDE
     Dosage: 0.2 MILLILITER, ONCE A DAY
     Route: 058
  8. ACETAMINOPHEN\OXYCODONE HYDROCHLORIDE [Concomitant]
     Active Substance: ACETAMINOPHEN\OXYCODONE HYDROCHLORIDE
     Indication: Hypertension
     Route: 065
  9. ACETAMINOPHEN\OXYCODONE HYDROCHLORIDE [Concomitant]
     Active Substance: ACETAMINOPHEN\OXYCODONE HYDROCHLORIDE
     Indication: Ankylosing spondylitis
  10. AMLODIPINE [Concomitant]
     Active Substance: AMLODIPINE BESYLATE
     Indication: Hypertension
     Route: 065
  11. AMLODIPINE [Concomitant]
     Active Substance: AMLODIPINE BESYLATE
     Indication: Ankylosing spondylitis
  12. ALLOPURINOL [Concomitant]
     Active Substance: ALLOPURINOL
     Indication: Hypertension
     Route: 065
  13. ALLOPURINOL [Concomitant]
     Active Substance: ALLOPURINOL
     Indication: Ankylosing spondylitis
  14. DEURSIL [Concomitant]
     Active Substance: URSODIOL
     Indication: Hypertension
     Route: 065
  15. DEURSIL [Concomitant]
     Active Substance: URSODIOL
     Indication: Ankylosing spondylitis
  16. PANTOPRAZOLE [Concomitant]
     Active Substance: PANTOPRAZOLE
     Indication: Hypertension
     Route: 065
  17. PANTOPRAZOLE [Concomitant]
     Active Substance: PANTOPRAZOLE
     Indication: Ankylosing spondylitis

REACTIONS (20)
  - Sepsis [Recovered/Resolved]
  - Pneumonia klebsiella [Recovered/Resolved]
  - Hypernatraemia [Recovering/Resolving]
  - Device related thrombosis [Recovering/Resolving]
  - Hyperthermia [Recovering/Resolving]
  - Stoma complication [Not Recovered/Not Resolved]
  - Arthralgia [Unknown]
  - Asthenia [Recovering/Resolving]
  - Cough [Recovering/Resolving]
  - Dyspepsia [Recovered/Resolved]
  - Flatulence [Not Recovered/Not Resolved]
  - Hypertension [Recovering/Resolving]
  - Hypocalcaemia [Recovering/Resolving]
  - Visual impairment [Recovering/Resolving]
  - Injection site pain [Recovering/Resolving]
  - Blood creatinine increased [Recovering/Resolving]
  - Product dose omission in error [Recovered/Resolved]
  - Expired product administered [Not Recovered/Not Resolved]
  - Fatigue [Not Recovered/Not Resolved]
  - Diarrhoea [Not Recovered/Not Resolved]

NARRATIVE: CASE EVENT DATE: 20250406
